FAERS Safety Report 7533055-6 (Version None)
Quarter: 2011Q2

REPORT INFORMATION
  Report Type: 
  Country: None (occurrence: None)
  Receive Date: 20110608
  Receipt Date: 20110531
  Transmission Date: 20111010
  Serious: Yes (Death)
  Sender: FDA-Public Use
  Company Number: GB-CELGENEUS-167-50794-11052707

PATIENT

DRUGS (2)
  1. VIDAZA [Suspect]
  2. VIDAZA [Suspect]
     Route: 050

REACTIONS (8)
  - EPSTEIN-BARR VIRUS ASSOCIATED LYMPHOPROLIFERATIVE DISORDER [None]
  - SEPSIS [None]
  - DEATH [None]
  - DISEASE RECURRENCE [None]
  - CYTOMEGALOVIRUS INFECTION [None]
  - GRAFT VERSUS HOST DISEASE [None]
  - PANCREATIC CARCINOMA [None]
  - RESPIRATORY FAILURE [None]
